FAERS Safety Report 9809165 (Version 2)
Quarter: 2014Q1

REPORT INFORMATION
  Report Type: Report from Study
  Country: CA (occurrence: CA)
  Receive Date: 20140110
  Receipt Date: 20140322
  Transmission Date: 20141002
  Serious: Yes (Death)
  Sender: FDA-Public Use
  Company Number: PHHY2014CA002713

PATIENT
  Sex: Male

DRUGS (2)
  1. CLOZARIL [Suspect]
     Indication: SCHIZOPHRENIA
     Dosage: 400 MG, QHS
     Route: 048
     Dates: start: 20120904
  2. FLUANXOL//FLUPENTIXOL DIHYDROCHLORIDE [Concomitant]
     Dosage: 60 UG, UNK

REACTIONS (1)
  - Viral myocarditis [Fatal]
